FAERS Safety Report 23146852 (Version 4)
Quarter: 2024Q4

REPORT INFORMATION
  Report Type: Spontaneous
  Country: US (occurrence: US)
  Receive Date: 20231105
  Receipt Date: 20241009
  Transmission Date: 20250115
  Serious: No
  Sender: BIOGEN
  Company Number: US-BIOGEN-2023BI01230704

PATIENT
  Sex: Female

DRUGS (8)
  1. VUMERITY [Suspect]
     Active Substance: DIROXIMEL FUMARATE
     Indication: Multiple sclerosis
     Dosage: 2 PILLS A DAY, STARTER DOSE TAKE 1 CAPSULE BY MOUTH EVERY?MORNING AND 2 CAPSULES BY MOUTH EVERY E...
     Route: 050
     Dates: start: 20230927
  2. VITAMIN D2 [Concomitant]
     Active Substance: ERGOCALCIFEROL
     Dosage: TAB 2000UNIT
     Route: 050
  3. VITAMIN B1 [Concomitant]
     Active Substance: THIAMINE HYDROCHLORIDE
     Route: 050
  4. PRAVASTATIN SODIUM [Concomitant]
     Active Substance: PRAVASTATIN SODIUM
     Dosage: 40 MG TAB
     Route: 050
  5. LISINOPRIL [Concomitant]
     Active Substance: LISINOPRIL
     Route: 050
  6. GLIMEPIRIDE [Concomitant]
     Active Substance: GLIMEPIRIDE
     Dosage: 4MG TAB
     Route: 050
  7. METFORMIN HYDROCHLORIDE [Concomitant]
     Active Substance: METFORMIN HYDROCHLORIDE
     Route: 050
  8. TRULICITY [Concomitant]
     Active Substance: DULAGLUTIDE
     Route: 050

REACTIONS (9)
  - Underdose [Unknown]
  - Product dose omission issue [Unknown]
  - Fatigue [Unknown]
  - Gastrointestinal disorder [Unknown]
  - Insomnia [Recovered/Resolved]
  - Dyspepsia [Not Recovered/Not Resolved]
  - Abdominal pain upper [Not Recovered/Not Resolved]
  - Urticaria [Unknown]
  - Flushing [Unknown]

NARRATIVE: CASE EVENT DATE: 20230101
